FAERS Safety Report 6268505-9 (Version None)
Quarter: 2009Q3

REPORT INFORMATION
  Report Type: 
  Country: None (occurrence: None)
  Receive Date: 20090709
  Receipt Date: 20080714
  Transmission Date: 20100115
  Serious: Yes (Hospitalization)
  Sender: FDA-Public Use
  Company Number: CIP08001308

PATIENT
  Age: 76 Year
  Sex: Male

DRUGS (3)
  1. MACROBID [Suspect]
     Indication: CYSTITIS
     Dosage: 100 MG, ORAL
     Route: 048
     Dates: start: 20080618
  2. MACRODANTIN [Concomitant]
     Indication: CYSTITIS
     Dosage: ORAL
     Route: 048
     Dates: start: 20080701
  3. LASIX /000032601/ (FUROSEMIDE) [Concomitant]

REACTIONS (2)
  - HYPERSENSITIVITY [None]
  - PYREXIA [None]
